FAERS Safety Report 18204722 (Version 2)
Quarter: 2020Q3

REPORT INFORMATION
  Report Type: Spontaneous
  Country: US (occurrence: US)
  Receive Date: 20200827
  Receipt Date: 20200908
  Transmission Date: 20201103
  Serious: No
  Sender: FDA-Public Use
  Company Number: US-TEVA-2020-US-1817596

PATIENT
  Sex: Female

DRUGS (3)
  1. ALPRAZOLAM TEVA [Suspect]
     Active Substance: ALPRAZOLAM
     Indication: ANXIETY
     Route: 065
     Dates: start: 20200804
  2. ALPRAZOLAM TEVA [Suspect]
     Active Substance: ALPRAZOLAM
     Indication: PANIC ATTACK
  3. ALPRAZOLAM TEVA [Suspect]
     Active Substance: ALPRAZOLAM
     Indication: POST-TRAUMATIC STRESS DISORDER

REACTIONS (15)
  - Headache [Unknown]
  - Asthenia [Unknown]
  - Product taste abnormal [Unknown]
  - Anxiety [Unknown]
  - Fatigue [Unknown]
  - Depressed mood [Unknown]
  - Depression [Unknown]
  - Irritability [Unknown]
  - Product substitution issue [Unknown]
  - Gastrointestinal disorder [Unknown]
  - Nausea [Unknown]
  - Abdominal pain upper [Unknown]
  - Pain [Unknown]
  - Drug ineffective [Unknown]
  - Insomnia [Unknown]

NARRATIVE: CASE EVENT DATE: 20200804
